FAERS Safety Report 10233435 (Version 1)
Quarter: 2014Q2

REPORT INFORMATION
  Report Type: Spontaneous
  Country: US (occurrence: US)
  Receive Date: 20140612
  Receipt Date: 20140612
  Transmission Date: 20141212
  Serious: No
  Sender: FDA-Public Use
  Company Number: US-ASTRAZENECA-2014SE39085

PATIENT
  Age: 85 Year
  Sex: Female

DRUGS (1)
  1. SYMBICORT [Suspect]
     Indication: CHRONIC OBSTRUCTIVE PULMONARY DISEASE
     Dosage: 160  4.5MCG 2 PUFFS BID
     Route: 055
     Dates: start: 2012

REACTIONS (2)
  - Dementia [Unknown]
  - Circumstance or information capable of leading to medication error [Unknown]
